FAERS Safety Report 7730892-X (Version None)
Quarter: 2011Q3

REPORT INFORMATION
  Report Type: 
  Country: None (occurrence: None)
  Receive Date: 20110906
  Receipt Date: 20110826
  Transmission Date: 20111222
  Serious: Yes (Other)
  Sender: FDA-Public Use
  Company Number: US-BAYER-2011-006611

PATIENT
  Age: 37 Year
  Sex: Female
  Weight: 52 kg

DRUGS (15)
  1. YASMIN [Suspect]
     Indication: CONTRACEPTION
     Dosage: UNK
     Dates: start: 20050301, end: 20091101
  2. COLAZOL [Concomitant]
     Indication: INFLAMMATORY BOWEL DISEASE
  3. ZANAFLEX [Concomitant]
  4. CIMZIA [Concomitant]
     Indication: ARTHRITIS
  5. PREDNISONE [Concomitant]
     Indication: INFLAMMATORY BOWEL DISEASE
  6. HYDROCODONE [Concomitant]
     Indication: PAIN
  7. DROSPIRENONE AND ETHINYL ESTRADIOL [Suspect]
     Indication: CONTRACEPTION
     Dosage: UNK
     Dates: start: 20050101, end: 20090101
  8. CLONAZEPAM [Concomitant]
     Indication: ANXIETY
  9. AMBIEN [Concomitant]
  10. PHENERGAN HCL [Concomitant]
     Indication: NAUSEA
  11. HUMIRA [Concomitant]
  12. ASACOL [Concomitant]
  13. CIMZIA [Concomitant]
     Indication: INFLAMMATORY BOWEL DISEASE
  14. MAXALT [Concomitant]
     Indication: MIGRAINE
  15. FIORICET [Concomitant]
     Indication: MIGRAINE

REACTIONS (4)
  - DEEP VEIN THROMBOSIS [None]
  - ANXIETY [None]
  - PAIN [None]
  - EMOTIONAL DISTRESS [None]
